FAERS Safety Report 26083104 (Version 1)
Quarter: 2025Q4

REPORT INFORMATION
  Report Type: Spontaneous
  Country: US (occurrence: None)
  Receive Date: 20251124
  Receipt Date: 20251124
  Transmission Date: 20260117
  Serious: Yes (Life-Threatening, Hospitalization)
  Sender: FDA-CTU
  Company Number: None

PATIENT
  Age: 78 Year
  Sex: Female
  Weight: 64 kg

DRUGS (6)
  1. MIRVETUXIMAB SORAVTANSINE-GYNX [Suspect]
     Active Substance: MIRVETUXIMAB SORAVTANSINE-GYNX
     Route: 042
  2. DEXAMETHASONE SODIUM PHOSPHATE [Suspect]
     Active Substance: DEXAMETHASONE SODIUM PHOSPHATE
  3. DIPHENHYDRAMINE [Suspect]
     Active Substance: DIPHENHYDRAMINE
  4. PALONOSETRON [Suspect]
     Active Substance: PALONOSETRON
  5. FAMOTIDINE [Suspect]
     Active Substance: FAMOTIDINE
  6. METHYLPREDNISOLONE [Suspect]
     Active Substance: METHYLPREDNISOLONE

REACTIONS (8)
  - Infusion related reaction [None]
  - Dyspnoea [None]
  - Abdominal pain [None]
  - Blood pressure increased [None]
  - Tachycardia [None]
  - Lethargy [None]
  - Chest pain [None]
  - Therapy interrupted [None]

NARRATIVE: CASE EVENT DATE: 20251022
